FAERS Safety Report 12102924 (Version 1)
Quarter: 2016Q1

REPORT INFORMATION
  Report Type: Other
  Country: US (occurrence: US)
  Receive Date: 20160222
  Receipt Date: 20160222
  Transmission Date: 20160526
  Serious: No
  Sender: FDA-Public Use
  Company Number: US-ACORDA-ACO_112601_2015

PATIENT
  Age: 45 Year
  Sex: Male
  Weight: 74.83 kg

DRUGS (11)
  1. AMPYRA [Suspect]
     Active Substance: DALFAMPRIDINE
     Dosage: 10 MG BID
     Route: 048
     Dates: start: 201510, end: 201511
  2. OXYCONTIN [Concomitant]
     Active Substance: OXYCODONE HYDROCHLORIDE
     Indication: PRODUCT USED FOR UNKNOWN INDICATION
     Dosage: 30 MG, BID
     Route: 065
     Dates: start: 2012
  3. PERCOCET [Concomitant]
     Active Substance: ACETAMINOPHEN\OXYCODONE HYDROCHLORIDE
     Dosage: 30 UNK, UNK
  4. PRAMIPEXOLE. [Concomitant]
     Active Substance: PRAMIPEXOLE
     Indication: PRODUCT USED FOR UNKNOWN INDICATION
     Dosage: 0.25 MG, UNK
     Dates: start: 201511
  5. AMPYRA [Suspect]
     Active Substance: DALFAMPRIDINE
     Dosage: 10 MG BID
     Route: 048
     Dates: start: 201511
  6. RESTORIL [Concomitant]
     Active Substance: TEMAZEPAM
     Indication: PRODUCT USED FOR UNKNOWN INDICATION
     Dosage: 30 MG, UNK
     Route: 065
     Dates: start: 2012
  7. PERCOCET [Concomitant]
     Active Substance: ACETAMINOPHEN\OXYCODONE HYDROCHLORIDE
     Indication: PRODUCT USED FOR UNKNOWN INDICATION
     Dosage: 15 MG, UNK
     Route: 065
     Dates: start: 2012
  8. VITAMIN D [Concomitant]
     Active Substance: CHOLECALCIFEROL
     Indication: PRODUCT USED FOR UNKNOWN INDICATION
     Dosage: 1.25 MG (50,000 IU), UNK
     Route: 065
     Dates: start: 201509
  9. TYSABRI [Concomitant]
     Active Substance: NATALIZUMAB
     Indication: PRODUCT USED FOR UNKNOWN INDICATION
     Dosage: UNK, MONTHLY
     Route: 042
     Dates: start: 2012
  10. AMPYRA [Suspect]
     Active Substance: DALFAMPRIDINE
     Indication: MULTIPLE SCLEROSIS
     Dosage: 10 MG BID
     Route: 048
     Dates: end: 20150504
  11. AMPYRA [Suspect]
     Active Substance: DALFAMPRIDINE
     Indication: GAIT DISTURBANCE
     Dosage: 10 MG, BID
     Route: 048
     Dates: start: 2012

REACTIONS (15)
  - Impaired driving ability [Unknown]
  - Hypoaesthesia [Unknown]
  - Paraesthesia [Unknown]
  - Speech disorder [Unknown]
  - Therapy cessation [Unknown]
  - Dysphagia [Unknown]
  - Fall [Not Recovered/Not Resolved]
  - Drug effect decreased [Unknown]
  - Malaise [Unknown]
  - Hypersomnia [Unknown]
  - Multiple sclerosis relapse [Unknown]
  - Gait disturbance [Not Recovered/Not Resolved]
  - Tooth loss [Unknown]
  - Dental caries [Not Recovered/Not Resolved]
  - Condition aggravated [Unknown]

NARRATIVE: CASE EVENT DATE: 201505
